FAERS Safety Report 4396189-3 (Version None)
Quarter: 2004Q3

REPORT INFORMATION
  Report Type: 
  Country: None (occurrence: None)
  Receive Date: 20040709
  Receipt Date: 20040623
  Transmission Date: 20050211
  Serious: Yes (Hospitalization)
  Sender: FDA-Public Use
  Company Number: 184986

PATIENT
  Age: 52 Year
  Sex: Female
  Weight: 77.1115 kg

DRUGS (10)
  1. AVONEX [Suspect]
     Indication: MULTIPLE SCLEROSIS
     Dosage: 30 MCG QW IM
     Route: 030
     Dates: start: 19980101, end: 20030801
  2. AVONEX [Suspect]
     Indication: MULTIPLE SCLEROSIS
     Dosage: 30 MCG QW IM
     Route: 030
     Dates: start: 20030801
  3. PAXIL [Concomitant]
  4. LEVOTHYROXINE SODIUM [Concomitant]
  5. ZOCOR [Concomitant]
  6. MEDICATION (NOS) [Concomitant]
  7. ATENOLOL [Concomitant]
  8. OXYBUTYNIN [Concomitant]
  9. IBUPROFEN [Concomitant]
  10. MEDICATION (NOS) [Concomitant]

REACTIONS (9)
  - ANXIETY [None]
  - CRYING [None]
  - DIFFICULTY IN WALKING [None]
  - EYE SWELLING [None]
  - FACIAL BONES FRACTURE [None]
  - FALL [None]
  - MEMORY IMPAIRMENT [None]
  - MUSCULAR WEAKNESS [None]
  - SKIN LACERATION [None]
